FAERS Safety Report 7296104-9 (Version None)
Quarter: 2011Q1

REPORT INFORMATION
  Report Type: 
  Country: None (occurrence: None)
  Receive Date: 20110216
  Receipt Date: 20110208
  Transmission Date: 20110831
  Serious: Yes (Hospitalization)
  Sender: FDA-Public Use
  Company Number: AU-ALLERGAN-1101771US

PATIENT
  Age: 65 Year
  Sex: Female
  Weight: 57 kg

DRUGS (4)
  1. BLINDED BOTULINUM TOXIN TYPE A - GENERAL (9060X) [Suspect]
     Indication: URINARY INCONTINENCE
     Dosage: UNK
     Route: 030
     Dates: start: 20110203, end: 20110203
  2. BLINDED BOTULINUM TOXIN TYPE A - GENERAL (9060X) [Suspect]
     Dosage: UNK
     Route: 030
     Dates: start: 20091210, end: 20091210
  3. BLINDED BOTULINUM TOXIN TYPE A - GENERAL (9060X) [Suspect]
     Dosage: UNK
     Route: 030
     Dates: start: 20100715, end: 20100715
  4. NORFLOXACIN [Concomitant]
     Indication: URINARY TRACT INFECTION
     Dosage: UNK
     Route: 048
     Dates: start: 20110130

REACTIONS (1)
  - POST PROCEDURAL HAEMORRHAGE [None]
